FAERS Safety Report 5629938-4 (Version None)
Quarter: 2008Q1

REPORT INFORMATION
  Report Type: 
  Country: None (occurrence: None)
  Receive Date: 20080218
  Receipt Date: 20080206
  Transmission Date: 20080703
  Serious: Yes (Other)
  Sender: FDA-Public Use
  Company Number: AU-ROCHE-542805

PATIENT
  Age: 20 Year
  Sex: Male
  Weight: 55 kg

DRUGS (5)
  1. ROACCUTANE [Suspect]
     Indication: DRUG USE FOR UNKNOWN INDICATION
     Dosage: STRENGTH REPORTED: 10 MG
     Route: 065
     Dates: start: 20071026, end: 20071101
  2. ROACCUTANE [Suspect]
     Dosage: STRENGTH REPORTED: 10 MG
     Route: 065
     Dates: start: 20071218
  3. ROACCUTANE [Suspect]
     Dosage: STRENGTH REPORTED: 20 MG
     Route: 065
     Dates: start: 20080108
  4. 1 CONCOMITANT DRUG [Concomitant]
     Dosage: DRUG REPORTED: SEREFIDE
     Dates: start: 20071218
  5. VENTOLIN [Concomitant]

REACTIONS (2)
  - ASTHMA [None]
  - DYSPNOEA [None]
